FAERS Safety Report 5983672-X (Version None)
Quarter: 2008Q4

REPORT INFORMATION
  Report Type: 
  Country: None (occurrence: None)
  Receive Date: 20081126
  Receipt Date: 20070928
  Transmission Date: 20090506
  Serious: Yes (Other)
  Sender: FDA-Public Use
  Company Number: 2007BH007991

PATIENT
  Age: 53 Year
  Sex: Male

DRUGS (2)
  1. DIANEAL [Suspect]
     Indication: RENAL FAILURE CHRONIC
     Dosage: UNK; IP
     Route: 033
     Dates: start: 20060701, end: 20070901
  2. DIANEAL [Suspect]
     Indication: RENAL FAILURE CHRONIC
     Dosage: UNK; IP
     Route: 033
     Dates: start: 20060701, end: 20070901

REACTIONS (1)
  - PERITONITIS [None]
